FAERS Safety Report 4388708-8 (Version None)
Quarter: 2004Q2

REPORT INFORMATION
  Report Type: 
  Country: None (occurrence: None)
  Receive Date: 20040624
  Receipt Date: 20040611
  Transmission Date: 20050107
  Serious: Yes (Hospitalization)
  Sender: FDA-Public Use
  Company Number: 2004-BP-04674YA

PATIENT
  Age: 63 Year
  Sex: Male

DRUGS (3)
  1. HARNAL (TAMSULOSIN) (NR) [Suspect]
     Indication: BENIGN PROSTATIC HYPERPLASIA
     Dosage: (0.2 MG) PO
     Route: 048
     Dates: start: 20040213, end: 20040522
  2. CHLORMADINONE ACETATE TAB [Suspect]
     Dosage: 50 MG (NR) PO
     Route: 048
     Dates: start: 20040227, end: 20040522
  3. FLAVOXATE HCL [Suspect]
     Dosage: 600 MG (NR) PO
     Route: 048
     Dates: start: 20040213, end: 20040522

REACTIONS (8)
  - ALANINE AMINOTRANSFERASE INCREASED [None]
  - ASPARTATE AMINOTRANSFERASE INCREASED [None]
  - ASTHENIA [None]
  - BLOOD ALKALINE PHOSPHATASE INCREASED [None]
  - BLOOD BILIRUBIN INCREASED [None]
  - GAMMA-GLUTAMYLTRANSFERASE INCREASED [None]
  - HEPATIC FUNCTION ABNORMAL [None]
  - MALAISE [None]
